FAERS Safety Report 5305563-X (Version None)
Quarter: 2007Q2

REPORT INFORMATION
  Report Type: 
  Country: None (occurrence: None)
  Receive Date: 20070424
  Receipt Date: 20070412
  Transmission Date: 20071010
  Serious: Yes (Hospitalization)
  Sender: FDA-Public Use
  Company Number: US-JNJFOC-20070402945

PATIENT
  Sex: Male
  Weight: 106.6 kg

DRUGS (10)
  1. FENTANYL TRANSDERMAL SYSTEM [Suspect]
     Indication: OSTEOARTHRITIS
     Dosage: 1 X 75UG/HR  1 X 100UG/HR
     Route: 062
  2. COLCHICINE [Concomitant]
     Indication: GOUT
     Route: 048
  3. ALLOPURINOL [Concomitant]
     Indication: GOUT
     Route: 048
  4. ATENOLOL [Concomitant]
     Indication: HYPERTENSION
     Route: 048
  5. OXYCODONE HCL [Concomitant]
     Indication: PAIN
     Route: 048
  6. DILAUDID [Concomitant]
     Indication: BREAKTHROUGH PAIN
     Route: 048
  7. NORVASC [Concomitant]
     Indication: HYPERTENSION
     Route: 048
  8. FERROUS SULFATE TAB [Concomitant]
     Indication: IRON DEFICIENCY
     Route: 048
  9. CITALOPRAM HYDROBROMIDE [Concomitant]
     Indication: DEPRESSION
     Route: 048
  10. ACIPHEX [Concomitant]
     Indication: DYSPEPSIA
     Route: 048

REACTIONS (5)
  - DYSPNOEA [None]
  - HYPERHIDROSIS [None]
  - INTERSTITIAL LUNG DISEASE [None]
  - OSTEOMYELITIS [None]
  - STAPHYLOCOCCAL INFECTION [None]
